FAERS Safety Report 5646852-9 (Version None)
Quarter: 2008Q1

REPORT INFORMATION
  Report Type: 
  Country: None (occurrence: None)
  Receive Date: 20080229
  Receipt Date: 20080229
  Transmission Date: 20080703
  Serious: No
  Sender: FDA-Public Use
  Company Number: None

PATIENT
  Age: 79 Year
  Sex: Male

DRUGS (9)
  1. LEVAQUIN [Suspect]
     Indication: BRONCHITIS
     Dosage: 750
     Route: 048
     Dates: start: 20080121
  2. NORVASC [Concomitant]
  3. METOPROLOL TARTRATE [Concomitant]
  4. GLYBURIDE [Concomitant]
  5. LISINOPRIL [Concomitant]
  6. METFORMIN HCL [Concomitant]
  7. NIASPAN ER [Concomitant]
  8. VYTORIN [Concomitant]
  9. ZOLOFT [Concomitant]

REACTIONS (1)
  - TENDON RUPTURE [None]
